FAERS Safety Report 8077010-9 (Version None)
Quarter: 2012Q1

REPORT INFORMATION
  Report Type: 
  Country: None (occurrence: None)
  Receive Date: 20120127
  Receipt Date: 20120123
  Transmission Date: 20120608
  Serious: Yes (Hospitalization, Disabling)
  Sender: FDA-Public Use
  Company Number: DE-GLAXOSMITHKLINE-D0074215A

PATIENT
  Age: 37 Year
  Sex: Male
  Weight: 92 kg

DRUGS (1)
  1. CEFUROXIME [Suspect]
     Indication: FURUNCLE
     Dosage: 500MG TWICE PER DAY
     Route: 048
     Dates: start: 20110711, end: 20110713

REACTIONS (1)
  - GRAND MAL CONVULSION [None]
